FAERS Safety Report 15789501 (Version 1)
Quarter: 2018Q4

REPORT INFORMATION
  Report Type: Spontaneous
  Country: US (occurrence: US)
  Receive Date: 20181213
  Receipt Date: 20181213
  Transmission Date: 20190205
  Serious: No
  Sender: FDA-Public Use
  Company Number: None

PATIENT
  Age: 75 Year
  Sex: Female

DRUGS (6)
  1. LSVOTHYROXINE [Concomitant]
  2. PRIMIDONE. [Concomitant]
     Active Substance: PRIMIDONE
  3. URSODIOL. [Concomitant]
     Active Substance: URSODIOL
  4. OCALIVA [Suspect]
     Active Substance: OBETICHOLIC ACID
     Indication: PRIMARY BILIARY CHOLANGITIS
     Route: 048
     Dates: start: 20180709, end: 20181109
  5. ATORVASTATIN [Concomitant]
     Active Substance: ATORVASTATIN
  6. CHOLESTYRAM [Concomitant]
     Active Substance: CHOLESTYRAMINE

REACTIONS (2)
  - Fatigue [None]
  - Pruritus [None]

NARRATIVE: CASE EVENT DATE: 20181108
